FAERS Safety Report 5116909-X (Version None)
Quarter: 2006Q3

REPORT INFORMATION
  Report Type: 
  Country: None (occurrence: None)
  Receive Date: 20060925
  Receipt Date: 20050221
  Transmission Date: 20061208
  Serious: Yes (Other)
  Sender: FDA-Public Use
  Company Number: CHNY2005DE01645

PATIENT
  Age: 39 Year
  Sex: Female
  Weight: 78 kg

DRUGS (4)
  1. NICOTINE [Suspect]
     Indication: SMOKING CESSATION THERAPY
     Dosage: 14 MG, QD, TRANSDERMAL
     Route: 062
     Dates: start: 20050221, end: 20050221
  2. VERAPAMIL [Concomitant]
  3. BETA BLOCKING AGENTS (NO INGREDIENTS/SUBSTANCES) [Concomitant]
  4. DIAZEPAM [Concomitant]

REACTIONS (6)
  - ARRHYTHMIA [None]
  - BLOOD PRESSURE INCREASED [None]
  - DIZZINESS [None]
  - HEADACHE [None]
  - HEART RATE INCREASED [None]
  - PALPITATIONS [None]
